FAERS Safety Report 4603587-9 (Version None)
Quarter: 2005Q1

REPORT INFORMATION
  Report Type: 
  Country: None (occurrence: None)
  Receive Date: 20050308
  Receipt Date: 20050221
  Transmission Date: 20050727
  Serious: No
  Sender: FDA-Public Use
  Company Number: 2005PK00360

PATIENT
  Age: 70 Year
  Sex: Male
  Weight: 93 kg

DRUGS (3)
  1. NEXIUM [Suspect]
     Indication: GASTROOESOPHAGEAL REFLUX DISEASE
  2. ALLOPURINOL [Suspect]
     Indication: BLOOD URIC ACID INCREASED
     Dates: end: 20050124
  3. TORSEMIDE [Concomitant]

REACTIONS (7)
  - CHOLESTASIS [None]
  - HEPATIC CIRRHOSIS [None]
  - HEPATIC FIBROSIS [None]
  - HEPATIC FUNCTION ABNORMAL [None]
  - HEPATIC STEATOSIS [None]
  - HEPATOTOXICITY [None]
  - IRRITABLE BOWEL SYNDROME [None]
